FAERS Safety Report 9172563 (Version 1)
Quarter: 2013Q1

REPORT INFORMATION
  Report Type: Spontaneous
  Country: US (occurrence: US)
  Receive Date: 20130318
  Receipt Date: 20130318
  Transmission Date: 20140127
  Serious: Yes (Other)
  Sender: FDA-Public Use
  Company Number: US-RB-051028-13

PATIENT
  Age: 34 Year
  Sex: Male

DRUGS (1)
  1. SUBOXONE TABLET [Suspect]
     Indication: DRUG DEPENDENCE
     Route: 060
     Dates: end: 2009

REACTIONS (2)
  - Drug withdrawal syndrome [Recovered/Resolved]
  - Suicidal ideation [Recovered/Resolved]
